FAERS Safety Report 5096211-5 (Version None)
Quarter: 2006Q3

REPORT INFORMATION
  Report Type: 
  Country: None (occurrence: None)
  Receive Date: 20060731
  Receipt Date: 20060429
  Transmission Date: 20061208
  Serious: No
  Sender: FDA-Public Use
  Company Number: 2006PV013005

PATIENT
  Age: 60 Year
  Sex: Male
  Weight: 90.7194 kg

DRUGS (5)
  1. BYETTA [Suspect]
     Indication: DIABETES MELLITUS NON-INSULIN-DEPENDENT
     Dosage: SEE IMAGE
     Route: 058
     Dates: start: 20060201, end: 20060317
  2. BYETTA [Suspect]
     Indication: DIABETES MELLITUS NON-INSULIN-DEPENDENT
     Dosage: SEE IMAGE
     Route: 058
     Dates: start: 20060318
  3. METFORMIN HCL [Concomitant]
  4. GLUCOTROL XL [Concomitant]
  5. LANTUS [Concomitant]

REACTIONS (3)
  - FATIGUE [None]
  - SOMNOLENCE [None]
  - WEIGHT DECREASED [None]
